FAERS Safety Report 5870718-2 (Version None)
Quarter: 2008Q3

REPORT INFORMATION
  Report Type: 
  Country: None (occurrence: None)
  Receive Date: 20080904
  Receipt Date: 20080827
  Transmission Date: 20090109
  Serious: Yes (Other)
  Sender: FDA-Public Use
  Company Number: PHHY2008BE18632

PATIENT
  Sex: Female

DRUGS (2)
  1. ACLASTA [Suspect]
     Indication: OSTEOPOROSIS
     Dosage: 5 MG AMPOULE
     Dates: start: 20080101
  2. ANTIHYPERTENSIVE DRUGS [Concomitant]

REACTIONS (1)
  - BONE PAIN [None]
